FAERS Safety Report 23677415 (Version 1)
Quarter: 2024Q1

REPORT INFORMATION
  Report Type: Spontaneous
  Country: US (occurrence: US)
  Receive Date: 20240327
  Receipt Date: 20240327
  Transmission Date: 20240410
  Serious: Yes (Other)
  Sender: FDA-Public Use
  Company Number: US-BAYER-2024A041901

PATIENT
  Age: 40 Year
  Sex: Female

DRUGS (6)
  1. LAROTRECTINIB [Suspect]
     Active Substance: LAROTRECTINIB
     Indication: Thyroid cancer metastatic
     Dosage: 50 MG, BID
     Route: 048
  2. LAROTRECTINIB [Suspect]
     Active Substance: LAROTRECTINIB
     Indication: NTRK gene fusion positive
     Dosage: 100 MG, BID
     Route: 048
  3. SELPERCATINIB [Suspect]
     Active Substance: SELPERCATINIB
     Indication: Thyroid cancer metastatic
     Dosage: 80 MG, BID
     Route: 048
  4. SELPERCATINIB [Suspect]
     Active Substance: SELPERCATINIB
     Indication: Thyroid cancer metastatic
     Dosage: 160 MG, BID
     Route: 048
  5. SELPERCATINIB [Suspect]
     Active Substance: SELPERCATINIB
     Indication: Thyroid cancer metastatic
     Dosage: 80 MG, BID
     Route: 048
  6. SELPERCATINIB [Suspect]
     Active Substance: SELPERCATINIB
     Indication: Thyroid cancer metastatic
     Dosage: 160 MG, BID
     Route: 048

REACTIONS (4)
  - Neuropathy peripheral [None]
  - Fatigue [Recovering/Resolving]
  - Liver function test increased [None]
  - Dry mouth [None]
